FAERS Safety Report 5630288-0 (Version None)
Quarter: 2008Q1

REPORT INFORMATION
  Report Type: 
  Country: None (occurrence: None)
  Receive Date: 20080219
  Receipt Date: 20080212
  Transmission Date: 20080703
  Serious: Yes (Other)
  Sender: FDA-Public Use
  Company Number: DE-BAYER-200810021GPV

PATIENT
  Age: 33 Year
  Sex: Female
  Weight: 25 kg

DRUGS (1)
  1. AVELOX [Suspect]
     Indication: BRONCHITIS BACTERIAL
     Dosage: TOTAL DAILY DOSE: 400 MG  UNIT DOSE: 400 MG
     Route: 048
     Dates: start: 20071028, end: 20071030

REACTIONS (7)
  - ANXIETY [None]
  - DEPRESSED MOOD [None]
  - DYSPHAGIA [None]
  - MUSCULAR WEAKNESS [None]
  - MYALGIA [None]
  - QUADRIPARESIS [None]
  - RESTLESSNESS [None]
